FAERS Safety Report 8875803 (Version 3)
Quarter: 2013Q2

REPORT INFORMATION
  Report Type: Spontaneous
  Country: CA (occurrence: CA)
  Receive Date: 20121030
  Receipt Date: 20130424
  Transmission Date: 20140414
  Serious: Yes (Other)
  Sender: FDA-Public Use
  Company Number: CA-GLAXOSMITHKLINE-A0997932A

PATIENT
  Age: 70 Year
  Sex: Male
  Weight: 84.1 kg

DRUGS (11)
  1. ADVAIR [Suspect]
     Indication: CHRONIC OBSTRUCTIVE PULMONARY DISEASE
     Dosage: 1PUFF TWICE PER DAY
     Route: 055
     Dates: start: 200809
  2. SALBUTAMOL [Suspect]
     Indication: PRODUCT USED FOR UNKNOWN INDICATION
     Dosage: 4PUFF FOURTEEN TIMES PER DAY
     Route: 065
  3. ATROVENT [Concomitant]
  4. SPIRIVA [Concomitant]
  5. IRON SUPPLEMENT [Concomitant]
     Dosage: 11MG PER DAY
     Route: 065
  6. ATORVASTATIN [Concomitant]
     Dosage: 20MG PER DAY
     Route: 065
  7. IRBESARTAN [Concomitant]
     Dosage: 150MG PER DAY
     Route: 065
  8. VITAMIN C [Concomitant]
     Dosage: 250MG PER DAY
     Route: 065
  9. FUROSEMIDE [Concomitant]
     Dosage: 40MG PER DAY
     Route: 065
  10. METFORMIN [Concomitant]
     Dosage: 500MG TWICE PER DAY
     Route: 065
  11. OXYGEN [Concomitant]

REACTIONS (11)
  - Oesophageal candidiasis [Unknown]
  - Impaired gastric emptying [Unknown]
  - Gastric haemorrhage [Unknown]
  - Gastrointestinal haemorrhage [Unknown]
  - Pharyngeal ulceration [Recovering/Resolving]
  - Petechiae [Unknown]
  - Haemoglobin decreased [Unknown]
  - Gastritis [Unknown]
  - Overdose [Unknown]
  - Dyspnoea [Not Recovered/Not Resolved]
  - Drug ineffective [Unknown]
